FAERS Safety Report 11244962 (Version 1)
Quarter: 2015Q3

REPORT INFORMATION
  Report Type: Spontaneous
  Country: US (occurrence: US)
  Receive Date: 20150707
  Receipt Date: 20150707
  Transmission Date: 20151125
  Serious: Yes (Other)
  Sender: FDA-Public Use
  Company Number: US-JNJFOC-20150703724

PATIENT
  Age: 74 Year
  Sex: Male

DRUGS (13)
  1. FLOMAX [Concomitant]
     Active Substance: TAMSULOSIN HYDROCHLORIDE
  2. IMBRUVICA [Suspect]
     Active Substance: IBRUTINIB
     Indication: HAIRY CELL LEUKAEMIA
     Route: 048
  3. IMBRUVICA [Suspect]
     Active Substance: IBRUTINIB
     Indication: HAIRY CELL LEUKAEMIA
     Route: 048
     Dates: start: 20140909
  4. IMBRUVICA [Suspect]
     Active Substance: IBRUTINIB
     Indication: MANTLE CELL LYMPHOMA
     Route: 048
  5. AMBIEN [Concomitant]
     Active Substance: ZOLPIDEM TARTRATE
  6. CENTRUM SILVER [Concomitant]
     Active Substance: VITAMINS
  7. IMBRUVICA [Suspect]
     Active Substance: IBRUTINIB
     Indication: MANTLE CELL LYMPHOMA
     Route: 048
     Dates: start: 20140909
  8. RITUXAN [Concomitant]
     Active Substance: RITUXIMAB
  9. PROPRANOLOL [Concomitant]
     Active Substance: PROPRANOLOL\PROPRANOLOL HYDROCHLORIDE
  10. BENADRYL [Concomitant]
     Active Substance: DIPHENHYDRAMINE HYDROCHLORIDE
  11. LISINOPRIL. [Concomitant]
     Active Substance: LISINOPRIL
  12. ASPIRIN. [Concomitant]
     Active Substance: ASPIRIN
  13. VITAMIN B12 [Concomitant]
     Active Substance: CYANOCOBALAMIN

REACTIONS (2)
  - Tendon rupture [Unknown]
  - Incorrect dose administered [Not Recovered/Not Resolved]

NARRATIVE: CASE EVENT DATE: 20140909
